FAERS Safety Report 6940461-7 (Version None)
Quarter: 2010Q3

REPORT INFORMATION
  Report Type: 
  Country: None (occurrence: None)
  Receive Date: 20100820
  Receipt Date: 20100812
  Transmission Date: 20110219
  Serious: Yes (Hospitalization, Other)
  Sender: FDA-Public Use
  Company Number: 2009SP025227

PATIENT
  Age: 19 Year
  Sex: Female

DRUGS (2)
  1. NUVARING [Suspect]
     Indication: CONTRACEPTION
     Dosage: QM;VAG
     Route: 067
     Dates: start: 20070725, end: 20070917
  2. PROVERA [Concomitant]

REACTIONS (30)
  - ANXIETY [None]
  - ARTHRALGIA [None]
  - BACK PAIN [None]
  - CERVICAL DYSPLASIA [None]
  - CHEST PAIN [None]
  - COUGH [None]
  - DRUG DOSE OMISSION [None]
  - DRUG EXPOSURE BEFORE PREGNANCY [None]
  - ECONOMIC PROBLEM [None]
  - GOITRE [None]
  - INJURY [None]
  - INTERNATIONAL NORMALISED RATIO DECREASED [None]
  - INTERNATIONAL NORMALISED RATIO INCREASED [None]
  - MENTAL STATUS CHANGES [None]
  - MUSCULOSKELETAL PAIN [None]
  - OEDEMA PERIPHERAL [None]
  - OSTEITIS [None]
  - OVARIAN CYST [None]
  - PAIN IN EXTREMITY [None]
  - PARANASAL CYST [None]
  - PHARYNGITIS [None]
  - PROTHROMBIN TIME PROLONGED [None]
  - PULMONARY EMBOLISM [None]
  - PYREXIA [None]
  - ROAD TRAFFIC ACCIDENT [None]
  - SWELLING [None]
  - TACHYCARDIA [None]
  - TWIN PREGNANCY [None]
  - UPPER RESPIRATORY TRACT INFECTION [None]
  - VAGINAL INFECTION [None]
